FAERS Safety Report 8519033-9 (Version None)
Quarter: 2012Q3

REPORT INFORMATION
  Report Type: 
  Country: None (occurrence: None)
  Receive Date: 20120718
  Receipt Date: 20120713
  Transmission Date: 20120928
  Serious: Yes (Hospitalization)
  Sender: FDA-Public Use
  Company Number: GXKR2012DE002245

PATIENT

DRUGS (2)
  1. ALIMTA [Suspect]
     Indication: BRONCHIAL CARCINOMA
     Dosage: 787 MG, UNK
     Route: 042
     Dates: start: 20111013, end: 20111103
  2. CARBOPLATIN [Suspect]
     Indication: BRONCHIAL CARCINOMA
     Dosage: 500 MG, UNK
     Route: 042
     Dates: start: 20111013, end: 20111103

REACTIONS (1)
  - GASTROENTERITIS [None]
